FAERS Safety Report 10189511 (Version 1)
Quarter: 2014Q2

REPORT INFORMATION
  Report Type: Report from Study
  Country: BD (occurrence: BD)
  Receive Date: 20140522
  Receipt Date: 20140522
  Transmission Date: 20141212
  Serious: Yes (Death, Hospitalization)
  Sender: FDA-Public Use
  Company Number: PHHY2014BD061876

PATIENT
  Age: 76 Year
  Sex: Male

DRUGS (1)
  1. EXELON [Suspect]
     Indication: DEMENTIA
     Dosage: 1.5 MG, DAILY
     Route: 048
     Dates: start: 201006

REACTIONS (3)
  - Decreased appetite [Fatal]
  - Loss of consciousness [Unknown]
  - Dehydration [Unknown]
